FAERS Safety Report 23792957 (Version 1)
Quarter: 2024Q2

REPORT INFORMATION
  Report Type: Spontaneous
  Country: GB (occurrence: None)
  Receive Date: 20240429
  Receipt Date: 20240429
  Transmission Date: 20240716
  Serious: Yes (Hospitalization, Other)
  Sender: FDA-Public Use
  Company Number: GB-Unichem Pharmaceuticals (USA) Inc-UCM202404-000450

PATIENT
  Age: 46 Year
  Sex: Male

DRUGS (1)
  1. AMLODIPINE [Suspect]
     Active Substance: AMLODIPINE BESYLATE
     Indication: Product used for unknown indication

REACTIONS (5)
  - Left ventricular dysfunction [Recovered/Resolved]
  - Mitral valve incompetence [Recovered/Resolved]
  - Myocarditis [Recovered/Resolved]
  - Pulmonary oedema [Recovered/Resolved]
  - Intentional overdose [Unknown]
